FAERS Safety Report 5463678-X (Version None)
Quarter: 2007Q3

REPORT INFORMATION
  Report Type: 
  Country: None (occurrence: None)
  Receive Date: 20070920
  Receipt Date: 20070912
  Transmission Date: 20080115
  Serious: Yes (Hospitalization)
  Sender: FDA-Public Use
  Company Number: JP-ABBOTT-07P-087-0416887-00

PATIENT
  Sex: Male

DRUGS (2)
  1. KLARICID [Suspect]
     Indication: PNEUMONIA
     Route: 048
     Dates: start: 20070904, end: 20070908
  2. FUROSEMIDE [Concomitant]
     Indication: DRUG USE FOR UNKNOWN INDICATION

REACTIONS (2)
  - GENERALISED OEDEMA [None]
  - URINE OUTPUT DECREASED [None]
